FAERS Safety Report 16066818 (Version 1)
Quarter: 2019Q1

REPORT INFORMATION
  Report Type: Spontaneous
  Country: US (occurrence: US)
  Receive Date: 20190212
  Receipt Date: 20190212
  Transmission Date: 20190418
  Serious: Yes (Hospitalization)
  Sender: FDA-Public Use
  Company Number: None

PATIENT
  Sex: Male

DRUGS (8)
  1. METHYLPRED [Concomitant]
     Active Substance: METHYLPREDNISOLONE
  2. IBUPROFEN. [Concomitant]
     Active Substance: IBUPROFEN
  3. TIZANIDINE. [Concomitant]
     Active Substance: TIZANIDINE
  4. AMOXICILLIN. [Concomitant]
     Active Substance: AMOXICILLIN
  5. ROSUVASTATIN. [Concomitant]
     Active Substance: ROSUVASTATIN
  6. CYCLOBENZAPR [Concomitant]
     Active Substance: CYCLOBENZAPRINE
  7. REPATHA [Suspect]
     Active Substance: EVOLOCUMAB
     Indication: ARTERIOSCLEROSIS
     Route: 058
     Dates: start: 20190207
  8. PANTOPRAZOLE [Concomitant]
     Active Substance: PANTOPRAZOLE

REACTIONS (1)
  - Influenza [None]
